FAERS Safety Report 16943520 (Version 2)
Quarter: 2020Q1

REPORT INFORMATION
  Report Type: Spontaneous
  Country: GB (occurrence: GB)
  Receive Date: 20191022
  Receipt Date: 20200227
  Transmission Date: 20200409
  Serious: Yes (Disabling)
  Sender: FDA-Public Use
  Company Number: GB-SUN PHARMACEUTICAL INDUSTRIES LTD-2019RR-224358

PATIENT

DRUGS (2)
  1. VENLAFAXINE [Suspect]
     Active Substance: VENLAFAXINE HYDROCHLORIDE
     Indication: DEPRESSION
     Dosage: 225 MILLIGRAM, DAILY
     Route: 064
     Dates: start: 20180101
  2. SERTRALINE [Concomitant]
     Active Substance: SERTRALINE HYDROCHLORIDE
     Indication: DEPRESSION
     Dosage: (BRIEFLY) DURING FIRST TRIMESTER
     Route: 064

REACTIONS (12)
  - Dyspnoea [Unknown]
  - Neurological examination abnormal [Unknown]
  - Acute kidney injury [Recovered/Resolved]
  - Jaundice [Recovered/Resolved]
  - Periventricular leukomalacia [Unknown]
  - Sepsis [Recovered/Resolved]
  - Agitation neonatal [Recovered/Resolved]
  - Newborn persistent pulmonary hypertension [Recovered/Resolved]
  - Premature baby [Unknown]
  - Preterm premature rupture of membranes [Recovered/Resolved]
  - Foetal exposure during pregnancy [Unknown]
  - Hepatic function abnormal [Recovered/Resolved]
